FAERS Safety Report 20955664 (Version 1)
Quarter: 2022Q2

REPORT INFORMATION
  Report Type: Spontaneous
  Country: FR (occurrence: FR)
  Receive Date: 20220614
  Receipt Date: 20220614
  Transmission Date: 20220721
  Serious: Yes (Hospitalization, Other)
  Sender: FDA-Public Use
  Company Number: FR-ANIPHARMA-2022-FR-000104

PATIENT
  Age: 95 Year
  Sex: Female

DRUGS (6)
  1. CANDESARTAN CILEXETIL [Suspect]
     Active Substance: CANDESARTAN CILEXETIL
     Indication: Hypertension
     Dosage: 16 MG DAILY
     Route: 048
  2. ASCORBIC ACID\FERROUS SULFATE [Suspect]
     Active Substance: ASCORBIC ACID\FERROUS SULFATE
     Dosage: 1 DF DAILY
     Route: 048
     Dates: end: 20220420
  3. TRAMADOL [Suspect]
     Active Substance: TRAMADOL
     Dosage: 250 MG DAILY
     Route: 048
     Dates: end: 20220420
  4. IXPRIM [Suspect]
     Active Substance: ACETAMINOPHEN\TRAMADOL HYDROCHLORIDE
     Route: 048
     Dates: end: 20220420
  5. EXEMESTANE [Concomitant]
     Active Substance: EXEMESTANE
     Dosage: 25 MG DAILY
     Route: 065
     Dates: end: 202104
  6. CHOLECALCIFEROL [Concomitant]
     Active Substance: CHOLECALCIFEROL
     Route: 048

REACTIONS (2)
  - Fall [Unknown]
  - Rhabdomyolysis [Unknown]

NARRATIVE: CASE EVENT DATE: 20220419
